FAERS Safety Report 11036916 (Version 1)
Quarter: 2015Q2

REPORT INFORMATION
  Report Type: Report from Study
  Country: NL (occurrence: NL)
  Receive Date: 20150416
  Receipt Date: 20150416
  Transmission Date: 20150821
  Serious: Yes (Hospitalization)
  Sender: FDA-Public Use
  Company Number: NL-BIOGENIDEC-2015BI044771

PATIENT
  Age: 60 Year
  Sex: Female

DRUGS (2)
  1. AVONEX [Suspect]
     Active Substance: INTERFERON BETA-1A
     Indication: RELAPSING-REMITTING MULTIPLE SCLEROSIS
     Route: 030
     Dates: start: 2001
  2. THYRAX [Concomitant]
     Active Substance: LEVOTHYROXINE
     Dates: start: 1998

REACTIONS (1)
  - Appendix disorder [Recovered/Resolved]

NARRATIVE: CASE EVENT DATE: 201408
